FAERS Safety Report 17597971 (Version 1)
Quarter: 2020Q1

REPORT INFORMATION
  Report Type: Spontaneous
  Country: None (occurrence: US)
  Receive Date: 20200330
  Receipt Date: 20200330
  Transmission Date: 20200409
  Serious: Yes (Other)
  Sender: FDA-Public Use
  Company Number: US-ORION CORPORATION ORION PHARMA-ENT 2020-0019

PATIENT
  Age: 57 Year
  Sex: Male

DRUGS (5)
  1. CARBIDOPA/LEVODOPA [Suspect]
     Active Substance: CARBIDOPA\LEVODOPA
     Dosage: 1 TABLET OF CARBIDOPA/LEVODOPA 25/250 MG PLUS CARBIDOPA/LEVODOPA-CONTROLLED RELEASE 25/100
     Route: 065
  2. AMANTADINE. [Suspect]
     Active Substance: AMANTADINE HYDROCHLORIDE
     Indication: PARKINSON^S DISEASE
     Route: 065
  3. CARBIDOPA/LEVODOPA [Suspect]
     Active Substance: CARBIDOPA\LEVODOPA
     Indication: PARKINSON^S DISEASE
     Dosage: STRENGTH: 25/50 MG;  1 TABLET EVERY 3.5 HOURS FOR 5 DOSES PER DAY
     Route: 065
  4. ENTACAPONE. [Suspect]
     Active Substance: ENTACAPONE
     Indication: PARKINSON^S DISEASE
     Route: 065
  5. CARBIDOPA/LEVODOPA [Suspect]
     Active Substance: CARBIDOPA\LEVODOPA
     Dosage: DOSE OF LEVODOPA WAS REDUCED
     Route: 065

REACTIONS (4)
  - On and off phenomenon [Unknown]
  - Dystonia [Unknown]
  - Dyskinesia [Unknown]
  - Freezing phenomenon [Recovering/Resolving]
